FAERS Safety Report 8276284-9 (Version None)
Quarter: 2012Q2

REPORT INFORMATION
  Report Type: 
  Country: None (occurrence: None)
  Receive Date: 20120412
  Receipt Date: 20120405
  Transmission Date: 20120825
  Serious: Yes (Disabling)
  Sender: FDA-Public Use
  Company Number: PHHY2012CL029243

PATIENT
  Age: 88 Year
  Sex: Female

DRUGS (7)
  1. DESLORATADINE [Concomitant]
  2. OFTAFILM [Concomitant]
  3. ACTIFEDRIN [Concomitant]
  4. ELCAL D FORTE [Concomitant]
  5. EXELON [Suspect]
     Dosage: 1.5 MG, UNK
  6. SICCAFLUID [Concomitant]
  7. FLECTOR [Concomitant]

REACTIONS (1)
  - DEAFNESS [None]
